FAERS Safety Report 20259887 (Version 2)
Quarter: 2022Q1

REPORT INFORMATION
  Report Type: Report from Study
  Country: US (occurrence: US)
  Receive Date: 20211230
  Receipt Date: 20220118
  Transmission Date: 20220424
  Serious: Yes (Hospitalization)
  Sender: FDA-Public Use
  Company Number: US-NOVARTISPH-NVSC2021US294867

PATIENT
  Age: 17 Year
  Sex: Male
  Weight: 80.73 kg

DRUGS (2)
  1. ILARIS [Suspect]
     Active Substance: CANAKINUMAB
     Indication: Still^s disease
     Dosage: 300 MG, EVERY 4 WEEKS
     Route: 058
     Dates: start: 20210922
  2. ILARIS [Suspect]
     Active Substance: CANAKINUMAB
     Dosage: 300 MG EVERY 4 WEEKS
     Route: 058

REACTIONS (5)
  - Pyrexia [Recovered/Resolved]
  - Rash [Unknown]
  - Headache [Unknown]
  - Arthralgia [Unknown]
  - Adverse drug reaction [Unknown]

NARRATIVE: CASE EVENT DATE: 20211124
